FAERS Safety Report 16183983 (Version 1)
Quarter: 2019Q2

REPORT INFORMATION
  Report Type: Spontaneous
  Country: IN (occurrence: IN)
  Receive Date: 20190411
  Receipt Date: 20190411
  Transmission Date: 20190711
  Serious: Yes (Death, Hospitalization, Other)
  Sender: FDA-Public Use
  Company Number: IN-ALEMBIC PHARMACUETICALS LIMITED-2019SCAL000209

PATIENT

DRUGS (1)
  1. LITHIUM CARBONATE. [Suspect]
     Active Substance: LITHIUM CARBONATE
     Indication: BIPOLAR DISORDER
     Dosage: 600 MILLIGRAM

REACTIONS (18)
  - Hyperammonaemia [Unknown]
  - Antipsychotic drug level increased [Unknown]
  - Pyrexia [Unknown]
  - Restlessness [Unknown]
  - Crying [Unknown]
  - Seizure [Unknown]
  - Renal impairment [Unknown]
  - Depressed mood [Unknown]
  - Septic encephalopathy [Fatal]
  - Insomnia [Unknown]
  - Delirium [Unknown]
  - Cardiac arrest [Fatal]
  - Hypotension [Unknown]
  - Myoclonus [Unknown]
  - Anaemia [Unknown]
  - Sepsis [Unknown]
  - Anxiety [Unknown]
  - White blood cell count increased [Unknown]
